FAERS Safety Report 7058968-3 (Version None)
Quarter: 2010Q4

REPORT INFORMATION
  Report Type: 
  Country: None (occurrence: None)
  Receive Date: 20101025
  Receipt Date: 20101013
  Transmission Date: 20110411
  Serious: Yes (Death, Hospitalization)
  Sender: FDA-Public Use
  Company Number: US-BIOGENIDEC-2010BI030724

PATIENT
  Age: 36 Year
  Sex: Female

DRUGS (5)
  1. TYSABRI [Suspect]
     Indication: MULTIPLE SCLEROSIS
     Route: 042
     Dates: start: 20080911, end: 20100810
  2. IBUPROFEN [Concomitant]
     Indication: HEADACHE
     Dates: end: 20100831
  3. CLONAZEPAM [Concomitant]
     Indication: BIPOLAR DISORDER
     Route: 048
     Dates: end: 20100101
  4. CELEXA [Concomitant]
     Route: 048
     Dates: end: 20100831
  5. BENADRYL [Concomitant]
     Route: 048
     Dates: end: 20100801

REACTIONS (1)
  - PNEUMONIA [None]
